FAERS Safety Report 9680124 (Version 13)
Quarter: 2018Q1

REPORT INFORMATION
  Report Type: Report from Study
  Country: CA (occurrence: CA)
  Receive Date: 20131111
  Receipt Date: 20180222
  Transmission Date: 20180509
  Serious: Yes (Other)
  Sender: FDA-Public Use
  Company Number: CA-ROCHE-1172708

PATIENT
  Age: 57 Year
  Sex: Female
  Weight: 102.1 kg

DRUGS (16)
  1. OMEGA 3 [Concomitant]
     Active Substance: OMEGA-3 FATTY ACIDS
  2. INSULIN [Concomitant]
     Active Substance: INSULIN NOS
     Indication: DIABETES MELLITUS
  3. LOSEC [Concomitant]
     Active Substance: OMEPRAZOLE
     Route: 048
     Dates: start: 20140603
  4. VALSARTAN. [Concomitant]
     Active Substance: VALSARTAN
  5. RITUXAN [Suspect]
     Active Substance: RITUXIMAB
     Indication: RHEUMATOID ARTHRITIS
     Dosage: LAST DOSE ON 03/JUN/2014
     Route: 042
     Dates: start: 20131104
  6. COVERSYL [Concomitant]
     Active Substance: PERINDOPRIL
     Indication: HYPERTENSION
     Route: 065
     Dates: start: 20160519
  7. ACTEMRA [Suspect]
     Active Substance: TOCILIZUMAB
     Indication: RHEUMATOID ARTHRITIS
     Route: 042
     Dates: start: 20121024, end: 20130515
  8. IMURAN [Concomitant]
     Active Substance: AZATHIOPRINE
     Indication: RHEUMATOID ARTHRITIS
  9. DIPHENHYDRAMINE. [Concomitant]
     Active Substance: DIPHENHYDRAMINE
     Route: 048
     Dates: start: 20140603
  10. ACETAMINOPHEN. [Concomitant]
     Active Substance: ACETAMINOPHEN
     Route: 048
     Dates: start: 20140703
  11. METHYLPREDNISOLONE. [Suspect]
     Active Substance: METHYLPREDNISOLONE
     Indication: PREMEDICATION
     Route: 042
     Dates: start: 20140603
  12. ZOPICLONE [Concomitant]
     Active Substance: ZOPICLONE
  13. ASA [Concomitant]
     Active Substance: ASPIRIN
     Dosage: PRE-RITUXAN
     Route: 065
  14. PREMARIN [Concomitant]
     Active Substance: ESTROGENS, CONJUGATED
  15. SYNTHROID [Concomitant]
     Active Substance: LEVOTHYROXINE SODIUM
     Indication: HYPOTHYROIDISM
  16. COUMADINE [Concomitant]
     Active Substance: WARFARIN SODIUM
     Route: 065
     Dates: start: 201501

REACTIONS (18)
  - Cutaneous lymphoma [Unknown]
  - Influenza [Recovered/Resolved]
  - Joint swelling [Unknown]
  - Sinusitis [Recovered/Resolved]
  - Blood pressure increased [Unknown]
  - Blood pressure increased [Unknown]
  - Weight increased [Unknown]
  - Malaise [Unknown]
  - Deep vein thrombosis postoperative [Unknown]
  - Hepatic enzyme increased [Unknown]
  - Gastritis [Unknown]
  - Headache [Unknown]
  - Herpes zoster [Not Recovered/Not Resolved]
  - Hypertension [Unknown]
  - Sinusitis [Recovered/Resolved]
  - Stress fracture [Recovering/Resolving]
  - Nasopharyngitis [Recovered/Resolved]
  - Blood glucose increased [Unknown]

NARRATIVE: CASE EVENT DATE: 20121120
